FAERS Safety Report 13726075 (Version 1)
Quarter: 2017Q3

REPORT INFORMATION
  Report Type: Spontaneous
  Country: US (occurrence: US)
  Receive Date: 20170706
  Receipt Date: 20170706
  Transmission Date: 20171127
  Serious: Yes (Congenital Anomaly, Other)
  Sender: FDA-Public Use
  Company Number: US-ABBVIE-17P-163-2029261-00

PATIENT
  Sex: Male

DRUGS (2)
  1. INDERAL [Concomitant]
     Active Substance: PROPRANOLOL HYDROCHLORIDE
     Indication: MATERNAL EXPOSURE TIMING UNSPECIFIED
  2. DEPAKOTE [Suspect]
     Active Substance: DIVALPROEX SODIUM
     Indication: MATERNAL EXPOSURE TIMING UNSPECIFIED
     Route: 064

REACTIONS (14)
  - Jaundice [Unknown]
  - Hypertelorism of orbit [Unknown]
  - Limb malformation [Unknown]
  - Psychomotor skills impaired [Unknown]
  - Foetal anticonvulsant syndrome [Unknown]
  - Multiple congenital abnormalities [Unknown]
  - Blindness congenital [Unknown]
  - Hypopituitarism [Unknown]
  - Septum pellucidum agenesis [Unknown]
  - Skull malformation [Unknown]
  - Foetal exposure during pregnancy [Unknown]
  - Hypoglycaemia neonatal [Unknown]
  - Septo-optic dysplasia [Unknown]
  - Congenital hypothyroidism [Unknown]
